FAERS Safety Report 10039655 (Version 3)
Quarter: 2014Q1

REPORT INFORMATION
  Report Type: Spontaneous
  Country: US (occurrence: US)
  Receive Date: 20140326
  Receipt Date: 20140328
  Transmission Date: 20141002
  Serious: Yes (Hospitalization)
  Sender: FDA-Public Use
  Company Number: US-JNJFOC-20140304030

PATIENT
  Age: 76 Year
  Sex: Male
  Weight: 78.9 kg

DRUGS (8)
  1. IMBRUVICA [Suspect]
     Indication: CHRONIC LYMPHOCYTIC LEUKAEMIA
     Dosage: 2 PILLS PER DAY
     Route: 048
     Dates: start: 20140205
  2. IMBRUVICA [Suspect]
     Indication: CHRONIC LYMPHOCYTIC LEUKAEMIA
     Dosage: FULL DOSE
     Route: 048
     Dates: start: 20140122, end: 20140131
  3. COUMADIN [Suspect]
     Indication: DEEP VEIN THROMBOSIS
  4. PRAVACHOL [Concomitant]
     Indication: HYPERLIPIDAEMIA
  5. ASCORBIC ACID [Concomitant]
  6. COENZYME Q10 [Concomitant]
     Indication: NUTRITIONAL SUPPLEMENTATION
  7. ACETAMINOPHEN W/HYDROCODONE [Concomitant]
     Indication: PAIN
  8. CHOLECALCIFEROL [Concomitant]

REACTIONS (5)
  - Renal haemorrhage [Recovered/Resolved]
  - Tongue ulceration [Recovered/Resolved]
  - Epistaxis [Recovered/Resolved]
  - Blood albumin decreased [Unknown]
  - Anaemia [Recovered/Resolved]
